FAERS Safety Report 5187685-X (Version None)
Quarter: 2006Q4

REPORT INFORMATION
  Report Type: 
  Country: None (occurrence: None)
  Receive Date: 20061214
  Receipt Date: 20061130
  Transmission Date: 20070319
  Serious: Yes (Life-Threatening)
  Sender: FDA-Public Use
  Company Number: 232867

PATIENT
  Age: 67 Year
  Sex: Male
  Weight: 81.5 kg

DRUGS (9)
  1. MABTHERA (RITUXIMAB) CONC FOR SOLUTION FOR INFUSION [Suspect]
     Indication: CHRONIC LYMPHOCYTIC LEUKAEMIA
     Dosage: 69 MG, INTRAVENOUS
     Route: 042
     Dates: start: 20061117
  2. FLUDARABINE PHOSPHATE [Suspect]
     Indication: CHRONIC LYMPHOCYTIC LEUKAEMIA
     Dosage: 49 MG, INTRAVENOUS
     Route: 042
     Dates: start: 20061117
  3. CYCLOPHOSPHAMIDE [Suspect]
     Indication: CHRONIC LYMPHOCYTIC LEUKAEMIA
     Dosage: 492.5 MG, INTRAVENOUS
     Route: 042
     Dates: start: 20061117
  4. ALLOPURINOL [Concomitant]
  5. VALTREX [Concomitant]
  6. ACETAMINOPHEN [Concomitant]
  7. DIBONDRIN (DIPHENHYDRAMINE HYDROCHLORIDE) [Concomitant]
  8. NAROBAN CDS [Concomitant]
  9. NACL.9%(SODIUM CHLORIDE) [Concomitant]

REACTIONS (8)
  - ANAPHYLACTIC REACTION [None]
  - BRONCHOSPASM [None]
  - CAPILLARY LEAK SYNDROME [None]
  - FLUID RETENTION [None]
  - LYMPHOMA [None]
  - OEDEMA [None]
  - PLEURAL EFFUSION [None]
  - TUMOUR LYSIS SYNDROME [None]
